FAERS Safety Report 24095462 (Version 1)
Quarter: 2024Q3

REPORT INFORMATION
  Report Type: Spontaneous
  Country: US (occurrence: US)
  Receive Date: 20240716
  Receipt Date: 20240716
  Transmission Date: 20241016
  Serious: Yes (Death, Life-Threatening, Other)
  Sender: HIKMA
  Company Number: US-MLMSERVICE-20240627-PI112241-00117-1

PATIENT

DRUGS (2)
  1. DEXAMETHASONE [Suspect]
     Active Substance: DEXAMETHASONE
     Indication: Hemiparesis
     Dosage: 4 MG TWICE DAILY
     Route: 065
  2. TEMOZOLOMIDE [Concomitant]
     Active Substance: TEMOZOLOMIDE
     Indication: Glioblastoma
     Dosage: 75 MILLIGRAM/SQ. METER
     Route: 065

REACTIONS (2)
  - Glioblastoma [Fatal]
  - Metastases to lung [Fatal]
